FAERS Safety Report 16374117 (Version 5)
Quarter: 2020Q1

REPORT INFORMATION
  Report Type: Spontaneous
  Country: US (occurrence: US)
  Receive Date: 20190530
  Receipt Date: 20200310
  Transmission Date: 20200409
  Serious: Yes (Hospitalization)
  Sender: FDA-Public Use
  Company Number: US-PFIZER INC-2019225056

PATIENT
  Age: 54 Year
  Sex: Male
  Weight: 112.4 kg

DRUGS (16)
  1. RAPAMUNE [Suspect]
     Active Substance: SIROLIMUS
     Dosage: 1 MG, 4X/DAY
     Route: 048
  2. CALCIUM CARBONATE W/VITAMIN D [CALCIUM CARBONATE;ERGOCALCIFEROL] [Concomitant]
     Dosage: 1 DF, 2X/DAY  (1 TABLET BY MOUTH 2 (TWO) TIMES DAILY)
     Route: 048
  3. RAPAMUNE [Suspect]
     Active Substance: SIROLIMUS
     Dosage: 4 MG, DAILY
     Route: 048
  4. ASPIRIN [ACETYLSALICYLIC ACID] [Concomitant]
     Active Substance: ASPIRIN
     Dosage: 81 MG, DAILY
     Route: 048
  5. ACTIGALL [Concomitant]
     Active Substance: URSODIOL
     Dosage: 300 MG, 2X/DAY
     Route: 048
     Dates: start: 20060709
  6. FOLVITE [FOLIC ACID] [Concomitant]
     Dosage: 800 UG, DAILY
     Route: 048
  7. COZAAR [Concomitant]
     Active Substance: LOSARTAN POTASSIUM
     Dosage: 50 MG, DAILY
     Route: 048
  8. PSYLLIUM HUSK [PLANTAGO OVATA HUSK] [Concomitant]
     Active Substance: HERBALS\PLANTAGO OVATA SEED COAT
     Dosage: 1.04 G, 2X/DAY
     Route: 048
  9. ZOCOR [Concomitant]
     Active Substance: SIMVASTATIN
     Dosage: 1 MG, UNK
     Route: 048
  10. HYTRIN [Concomitant]
     Active Substance: TERAZOSIN HYDROCHLORIDE
     Dosage: 1 MG, 1X/DAY (NIGHTLY)
     Route: 048
  11. VITAMIN B12 [Concomitant]
     Active Substance: CYANOCOBALAMIN
     Dosage: 1000 UG, DAILY
     Route: 048
  12. URSODIOL. [Concomitant]
     Active Substance: URSODIOL
     Dosage: UNK
     Dates: start: 20060709
  13. SIMVASTATIN. [Concomitant]
     Active Substance: SIMVASTATIN
     Dosage: 40 MG, 1X/DAY (NIGHTLY)
     Route: 048
  14. VALTREX [Concomitant]
     Active Substance: VALACYCLOVIR HYDROCHLORIDE
     Dosage: 1000 MG, 3X/DAY (EVERY 8 (EIGHT) HOURS FOR 6 DAYS)
     Route: 048
  15. RAPAMUNE [Suspect]
     Active Substance: SIROLIMUS
     Indication: LIVER TRANSPLANT
     Dosage: 4 MG, 1X/DAY
     Route: 048
     Dates: start: 200608
  16. NEURONTIN [Concomitant]
     Active Substance: GABAPENTIN
     Dosage: 300 MG, 2X/DAY (FOR 7 DAYS)
     Route: 048

REACTIONS (7)
  - Off label use [Unknown]
  - Product physical issue [Unknown]
  - Herpes zoster [Recovered/Resolved]
  - Post herpetic neuralgia [Unknown]
  - Poor quality product administered [Unknown]
  - Meningitis aseptic [Recovered/Resolved]
  - Product use in unapproved indication [Unknown]

NARRATIVE: CASE EVENT DATE: 200608
